FAERS Safety Report 9437010 (Version 1)
Quarter: 2013Q3

REPORT INFORMATION
  Report Type: Spontaneous
  Country: PT (occurrence: PT)
  Receive Date: 20130802
  Receipt Date: 20130802
  Transmission Date: 20140515
  Serious: Yes (Death, Hospitalization)
  Sender: FDA-Public Use
  Company Number: PT-ROXANE LABORATORIES, INC.-2013-RO-01262RO

PATIENT
  Age: 3 Year
  Sex: Male

DRUGS (1)
  1. METHADONE [Suspect]

REACTIONS (4)
  - Death [Fatal]
  - Encephalitis [Unknown]
  - Accidental exposure to product by child [Unknown]
  - Toxicity to various agents [Unknown]
